FAERS Safety Report 9466157 (Version 1)
Quarter: 2013Q3

REPORT INFORMATION
  Report Type: Spontaneous
  Country: US (occurrence: US)
  Receive Date: 20130820
  Receipt Date: 20130820
  Transmission Date: 20140515
  Serious: No
  Sender: FDA-Public Use
  Company Number: US-B.I. PHARMACEUTICALS,INC./RIDGEFIELD-2013-BI-24613BP

PATIENT
  Age: 60 Year
  Sex: Female

DRUGS (4)
  1. SPIRIVA [Suspect]
     Indication: LUNG INFECTION
     Dosage: 18 MG
     Route: 055
     Dates: start: 201306
  2. AZITHROMYCIN [Concomitant]
     Indication: LUNG INFECTION
     Dates: start: 201306
  3. ETHAMBUTOL [Concomitant]
     Indication: LUNG INFECTION
  4. RIFAMPIN [Concomitant]
     Indication: LUNG INFECTION

REACTIONS (2)
  - Off label use [Not Recovered/Not Resolved]
  - Urticaria [Not Recovered/Not Resolved]
